FAERS Safety Report 12203623 (Version 1)
Quarter: 2016Q1

REPORT INFORMATION
  Report Type: Spontaneous
  Country: US (occurrence: None)
  Receive Date: 20160322
  Receipt Date: 20160322
  Transmission Date: 20160526
  Serious: No
  Sender: FDA-Public Use
  Company Number: None

PATIENT
  Age: 35 Year
  Sex: Female

DRUGS (1)
  1. KEFLEX [Suspect]
     Active Substance: CEPHALEXIN
     Indication: NAIL INFECTION
     Route: 048
     Dates: start: 20160307, end: 20160315

REACTIONS (2)
  - Menstrual disorder [None]
  - Metrorrhagia [None]

NARRATIVE: CASE EVENT DATE: 20160307
